FAERS Safety Report 17339630 (Version 1)
Quarter: 2020Q1

REPORT INFORMATION
  Report Type: Spontaneous
  Country: US (occurrence: US)
  Receive Date: 20200129
  Receipt Date: 20200129
  Transmission Date: 20200409
  Serious: No
  Sender: FDA-Public Use
  Company Number: US-P+L DEVELOPMENTS OF NEWYORK CORPORATION-2079524

PATIENT
  Sex: Female

DRUGS (1)
  1. M-ZOLE 3 COMBINATION PACK [Suspect]
     Active Substance: MICONAZOLE NITRATE
     Indication: VULVOVAGINAL MYCOTIC INFECTION
     Route: 067
     Dates: start: 20200113, end: 20200115

REACTIONS (2)
  - Vaginal discharge [Unknown]
  - Expired product administered [Unknown]

NARRATIVE: CASE EVENT DATE: 20200113
